FAERS Safety Report 12899487 (Version 1)
Quarter: 2016Q4

REPORT INFORMATION
  Report Type: Spontaneous
  Country: US (occurrence: US)
  Receive Date: 20161101
  Receipt Date: 20161101
  Transmission Date: 20170207
  Serious: Yes (Hospitalization)
  Sender: FDA-Public Use
  Company Number: US-LPDUSPRD-20160894

PATIENT
  Age: 50 Year
  Sex: Female

DRUGS (8)
  1. EDECRIN [Concomitant]
     Active Substance: ETHACRYNIC ACID
     Dosage: 50(UNITS NOT PROVIDED) ONGOING
     Route: 065
  2. INJECTAFER [Suspect]
     Active Substance: FERRIC CARBOXYMALTOSE
     Dosage: 750 MG IN 100 ML IN 1 HOUR
     Route: 042
     Dates: start: 20160902, end: 20160909
  3. FOLIC ACID. [Concomitant]
     Active Substance: FOLIC ACID
     Dosage: 1 (UNITS NOT PROVIDED) ONGOING
     Route: 065
  4. LISINOPRIL. [Concomitant]
     Active Substance: LISINOPRIL
     Dosage: 20 (UNITS UNK) ONGOING
     Route: 065
  5. VITAMIN D [Concomitant]
     Active Substance: CHOLECALCIFEROL
     Dosage: 50 (UNK) ONGOING
     Route: 065
  6. LEXAPRO [Concomitant]
     Active Substance: ESCITALOPRAM OXALATE
     Dosage: 20 (UNK) TWICE DAILY
     Route: 065
  7. NEXIUM [Concomitant]
     Active Substance: ESOMEPRAZOLE MAGNESIUM
     Dosage: 40 (UNITS UNK) ONGOING
     Route: 065
  8. XANEX [Concomitant]
     Dosage: 0.25 (UNITS UNK) ONGOING
     Route: 065

REACTIONS (6)
  - Dyspnoea [Recovered/Resolved]
  - Erythema [Recovered/Resolved]
  - Aphasia [Recovered/Resolved]
  - Tunnel vision [Recovered/Resolved]
  - Chest pain [Recovered/Resolved]
  - Loss of consciousness [Unknown]

NARRATIVE: CASE EVENT DATE: 20160909
